FAERS Safety Report 13791766 (Version 1)
Quarter: 2017Q3

REPORT INFORMATION
  Report Type: Spontaneous
  Country: US (occurrence: US)
  Receive Date: 20170725
  Receipt Date: 20170725
  Transmission Date: 20171127
  Serious: No
  Sender: FDA-Public Use
  Company Number: None

PATIENT
  Sex: Male
  Weight: 103.5 kg

DRUGS (18)
  1. HARVONI [Suspect]
     Active Substance: LEDIPASVIR\SOFOSBUVIR
     Indication: HEPATITIS C
     Route: 048
     Dates: start: 20170606
  2. TRAZODONE [Concomitant]
     Active Substance: TRAZODONE HYDROCHLORIDE
  3. FINASTERIDE. [Concomitant]
     Active Substance: FINASTERIDE
  4. ACETAMINOPHEN. [Concomitant]
     Active Substance: ACETAMINOPHEN
  5. METHADONE [Concomitant]
     Active Substance: METHADONE HYDROCHLORIDE
  6. COLBETASOL [Concomitant]
  7. TACROLIMUS. [Concomitant]
     Active Substance: TACROLIMUS
  8. MAGNESIUM OXIDE. [Concomitant]
     Active Substance: MAGNESIUM OXIDE
  9. METFORMIN [Concomitant]
     Active Substance: METFORMIN HYDROCHLORIDE
  10. TERAZOSIN [Concomitant]
     Active Substance: TERAZOSIN\TERAZOSIN HYDROCHLORIDE
  11. HYDORCHLOROTHIAZIDE [Concomitant]
  12. TRAMADOL. [Concomitant]
     Active Substance: TRAMADOL
  13. SUMATRIPTAN. [Concomitant]
     Active Substance: SUMATRIPTAN
  14. MULTIVITAMIN WITH MINERALS [Concomitant]
     Active Substance: MINERALS\VITAMINS
  15. GLUCOSAMINE + CHONDROITIN W MSM [Concomitant]
  16. HS NAPROXEN [Concomitant]
  17. RIBAVIRIN. [Concomitant]
     Active Substance: RIBAVIRIN
  18. ALBUTEROL HFA INHALER [Concomitant]

REACTIONS (4)
  - Diarrhoea [None]
  - Headache [None]
  - Abdominal distension [None]
  - Acne [None]
